FAERS Safety Report 25535293 (Version 2)
Quarter: 2025Q4

REPORT INFORMATION
  Report Type: Spontaneous
  Country: AU (occurrence: AU)
  Receive Date: 20250709
  Receipt Date: 20251223
  Transmission Date: 20260119
  Serious: Yes (Hospitalization, Other)
  Sender: CSL BEHRING
  Company Number: AU-BEH-2025211669

PATIENT
  Age: 78 Year
  Sex: Female
  Weight: 39 kg

DRUGS (1)
  1. HUMAN IMMUNOGLOBULIN G [Suspect]
     Active Substance: HUMAN IMMUNOGLOBULIN G
     Indication: Lymphoma
     Dosage: 3 ML, QMT
     Route: 042
     Dates: start: 20250703

REACTIONS (3)
  - Facial paralysis [Not Recovered/Not Resolved]
  - Respiratory rate increased [Not Recovered/Not Resolved]
  - Off label use [Unknown]

NARRATIVE: CASE EVENT DATE: 20250703
